FAERS Safety Report 9222790 (Version 1)
Quarter: 2013Q1

REPORT INFORMATION
  Report Type: Spontaneous
  Country: US (occurrence: None)
  Receive Date: 20120914
  Receipt Date: 20120914
  Transmission Date: 20140127
  Serious: Yes (Hospitalization)
  Sender: FDA-Public Use
  Company Number: JPI-P-018646

PATIENT
  Age: 77 Year
  Sex: Female
  Weight: 69.4 kg

DRUGS (8)
  1. XYREM (500 MILLIGRAM/MILLITERS, SOLUTION) (SODIUM OXYBATE) [Suspect]
     Indication: NARCOLEPSY
     Route: 048
     Dates: start: 200411
  2. CLOPIDROGREL BISULFATE [Concomitant]
  3. ATORVASTATIN CALCIUM [Concomitant]
  4. GABAPENTIN [Concomitant]
  5. BUSPIRONE [Concomitant]
  6. HYDROCODONE [Concomitant]
  7. MONTELUKAST SODIUM [Concomitant]
  8. IRON [Concomitant]

REACTIONS (1)
  - Fall [None]
